FAERS Safety Report 10649396 (Version 1)
Quarter: 2014Q4

REPORT INFORMATION
  Report Type: Spontaneous
  Country: US (occurrence: None)
  Receive Date: 20141205
  Receipt Date: 20141205
  Transmission Date: 20150529
  Serious: No
  Sender: FDA-Public Use
  Company Number: 163-POMAL-14083678

PATIENT
  Age: 75 Year
  Sex: Female

DRUGS (10)
  1. RESTASIS (CICLOSPORIN) [Concomitant]
  2. OXYCONTIN [Concomitant]
     Active Substance: OXYCODONE HYDROCHLORIDE
  3. BYSTOLIC [Concomitant]
     Active Substance: NEBIVOLOL HYDROCHLORIDE
  4. DEXAMETHASONE (DEXAMETHASONE) [Concomitant]
     Active Substance: DEXAMETHASONE
  5. TYLENOL [Concomitant]
     Active Substance: ACETAMINOPHEN
  6. SIMVASTATIN (SIMVASTATIN) [Concomitant]
     Active Substance: SIMVASTATIN
  7. NEURONTIN [Concomitant]
     Active Substance: GABAPENTIN
  8. ZOMETA [Concomitant]
     Active Substance: ZOLEDRONIC ACID
  9. MULTIPLE VITAMINS [Concomitant]
     Active Substance: VITAMINS
  10. POMALYST [Suspect]
     Active Substance: POMALIDOMIDE
     Indication: PLASMA CELL MYELOMA
     Route: 048
     Dates: start: 201407

REACTIONS (3)
  - Neuropathy peripheral [None]
  - Dry mouth [None]
  - Cough [None]

NARRATIVE: CASE EVENT DATE: 201406
